FAERS Safety Report 23751910 (Version 1)
Quarter: 2024Q2

REPORT INFORMATION
  Report Type: Spontaneous
  Country: US (occurrence: US)
  Receive Date: 20240417
  Receipt Date: 20240417
  Transmission Date: 20240716
  Serious: Yes (Hospitalization, Other)
  Sender: FDA-Public Use
  Company Number: US-BRISTOL-MYERS SQUIBB COMPANY-2024-057204

PATIENT
  Age: 82 Year
  Sex: Male
  Weight: 75 kg

DRUGS (2)
  1. ELIQUIS [Suspect]
     Active Substance: APIXABAN
     Indication: Atrial fibrillation
     Dates: start: 202209
  2. TORSEMIDE [Concomitant]
     Active Substance: TORSEMIDE
     Indication: Product used for unknown indication

REACTIONS (10)
  - Benign prostatic hyperplasia [Unknown]
  - Inguinal hernia [Unknown]
  - Cardiac failure congestive [Unknown]
  - Urinary tract infection [Unknown]
  - Peripheral swelling [Unknown]
  - Dyspnoea exertional [Unknown]
  - Chronic kidney disease [Recovering/Resolving]
  - Acute myocardial infarction [Unknown]
  - Urinary retention [Unknown]
  - Acute kidney injury [Recovering/Resolving]

NARRATIVE: CASE EVENT DATE: 20221012
